FAERS Safety Report 14954817 (Version 1)
Quarter: 2018Q2

REPORT INFORMATION
  Report Type: Spontaneous
  Country: FR (occurrence: FR)
  Receive Date: 20180530
  Receipt Date: 20180530
  Transmission Date: 20180711
  Serious: Yes (Hospitalization)
  Sender: FDA-Public Use
  Company Number: FR-TEVA-2018-FR-898278

PATIENT
  Age: 63 Year
  Sex: Male

DRUGS (13)
  1. OXYNORM 10 MG, CAPSULE [Suspect]
     Active Substance: OXYCODONE HYDROCHLORIDE
     Indication: PAIN
     Dates: start: 20170828
  2. LACTULOSE. [Concomitant]
     Active Substance: LACTULOSE
     Dosage: 2 DOSAGE FORMS DAILY;
     Route: 048
  3. LYRICA 25 MG, CAPSULE [Concomitant]
     Indication: EPILEPSY
     Dosage: 4 DOSAGE FORMS DAILY;
     Route: 048
  4. DITROPAN 5 MG, SCORED TABLET [Concomitant]
     Dosage: 2 DOSAGE FORMS DAILY;
     Route: 048
  5. AUGMENTIN [Concomitant]
     Active Substance: AMOXICILLIN\CLAVULANATE POTASSIUM
     Indication: LUNG DISORDER
     Dosage: 3 GRAM DAILY;
     Route: 048
     Dates: start: 20170828
  6. AZOPT 10 MG/ML, SUSPENDED EYE DROPS [Concomitant]
     Dosage: 2 GTT DAILY;
     Route: 047
  7. LEPTICUR 10 MG, TABLET [Concomitant]
     Dosage: 1 DOSAGE FORMS DAILY;
     Route: 048
  8. TRANXENE [Suspect]
     Active Substance: CLORAZEPATE DIPOTASSIUM
     Indication: ANXIETY
     Dosage: 1 DOSAGE FORMS DAILY;
     Route: 048
  9. DOLIPRANE 1000 MG, TABLET [Concomitant]
     Indication: PAIN
     Dosage: 4 DOSAGE FORMS DAILY;
     Route: 048
     Dates: start: 20170828
  10. LOVENOX [Suspect]
     Active Substance: ENOXAPARIN SODIUM
     Route: 058
     Dates: start: 20170828
  11. TRAMADOL (CHLORHYDRATE DE) [Suspect]
     Active Substance: TRAMADOL HYDROCHLORIDE
     Indication: PAIN
     Dosage: IF NECESSARY
     Route: 048
     Dates: start: 20170828
  12. OXYCODONE MYLAN LP 20 MG, EXTENDED RELEASE COATED TABLET [Suspect]
     Active Substance: OXYCODONE
     Indication: PAIN
     Route: 048
     Dates: start: 20170828
  13. DEPAKINE [Concomitant]
     Active Substance: VALPROATE SODIUM
     Indication: EPILEPSY
     Dosage: 2 DOSAGE FORMS DAILY;
     Route: 048

REACTIONS (6)
  - Somnolence [Recovered/Resolved]
  - Acute respiratory failure [Recovered/Resolved]
  - Hypotension [Recovered/Resolved]
  - Acute kidney injury [Recovered/Resolved]
  - Tachycardia [Recovered/Resolved]
  - Miosis [Recovered/Resolved]

NARRATIVE: CASE EVENT DATE: 20170828
